FAERS Safety Report 21124792 (Version 2)
Quarter: 2022Q3

REPORT INFORMATION
  Report Type: Report from Study
  Country: US (occurrence: US)
  Receive Date: 20220725
  Receipt Date: 20220805
  Transmission Date: 20221026
  Serious: Yes (Hospitalization, Other)
  Sender: FDA-Public Use
  Company Number: US-BRISTOL-MYERS SQUIBB COMPANY-2022-073729

PATIENT
  Age: 67 Year
  Sex: Male
  Weight: 87.4 kg

DRUGS (3)
  1. ROMIDEPSIN [Suspect]
     Active Substance: ROMIDEPSIN
     Indication: Acute lymphocytic leukaemia
     Dosage: 40 MG/M2 ? 2.17 M2INTRAVENOUS,
     Route: 042
     Dates: start: 20220412, end: 20220415
  2. BUSULFAN [Concomitant]
     Active Substance: BUSULFAN
     Indication: Product used for unknown indication
     Dates: start: 20220412, end: 20220415
  3. FLUDARABINE [Concomitant]
     Active Substance: FLUDARABINE PHOSPHATE
     Indication: Product used for unknown indication
     Dosage: 40 MG/M2 ? 2.17 M2
     Dates: start: 20220412, end: 20220415

REACTIONS (1)
  - Viral haemorrhagic cystitis [Unknown]

NARRATIVE: CASE EVENT DATE: 20220628
